FAERS Safety Report 5277431-3 (Version None)
Quarter: 2007Q1

REPORT INFORMATION
  Report Type: 
  Country: None (occurrence: None)
  Receive Date: 20070327
  Receipt Date: 20070319
  Transmission Date: 20070707
  Serious: Yes (Other)
  Sender: FDA-Public Use
  Company Number: US-BRACCO-BDI-009256

PATIENT
  Sex: Male

DRUGS (2)
  1. MULTIHANCE [Suspect]
     Indication: CAROTID ARTERY STENOSIS
     Route: 042
     Dates: start: 20070316, end: 20070316
  2. MULTIHANCE [Suspect]
     Route: 042
     Dates: start: 20070316, end: 20070316

REACTIONS (5)
  - AGITATION [None]
  - BURNING SENSATION [None]
  - LOSS OF CONSCIOUSNESS [None]
  - PRURITUS [None]
  - PULSE ABSENT [None]
